FAERS Safety Report 5419404-3 (Version None)
Quarter: 2007Q3

REPORT INFORMATION
  Report Type: 
  Country: None (occurrence: None)
  Receive Date: 20070820
  Receipt Date: 20070814
  Transmission Date: 20080115
  Serious: Yes (Other)
  Sender: FDA-Public Use
  Company Number: A0670162A

PATIENT
  Age: 64 Year
  Sex: Female

DRUGS (20)
  1. ADVAIR DISKUS 100/50 [Suspect]
     Indication: BRONCHIECTASIS
     Dosage: 1PUFF TWICE PER DAY
     Route: 055
     Dates: start: 20040101
  2. MEGESTROL ACETATE [Concomitant]
  3. SPIRIVA [Concomitant]
  4. TOBRAMYCIN [Concomitant]
     Route: 055
  5. AZITHROMYCIN [Concomitant]
     Dosage: 500MG THREE TIMES PER DAY
  6. PENTASA [Concomitant]
  7. COLESTID [Concomitant]
  8. LOPERAMIDE HCL [Concomitant]
  9. COZAAR [Concomitant]
  10. ALENDRONATE SODIUM [Concomitant]
     Route: 042
  11. CENTRUM SILVER [Concomitant]
  12. PROBIOTICS [Concomitant]
  13. LASIX [Concomitant]
  14. PULMOZYME [Concomitant]
     Route: 055
  15. CIPROFLOXACIN [Concomitant]
  16. COMBIVENT [Concomitant]
  17. AZACTAM [Concomitant]
     Route: 055
  18. FLUCONAZOLE [Concomitant]
  19. ATROVENT [Concomitant]
  20. ALLEGRA [Concomitant]

REACTIONS (7)
  - CONDITION AGGRAVATED [None]
  - DEAFNESS [None]
  - FATIGUE [None]
  - JOINT SWELLING [None]
  - POLLAKIURIA [None]
  - THERAPEUTIC RESPONSE DECREASED [None]
  - VISION BLURRED [None]
